FAERS Safety Report 16324219 (Version 1)
Quarter: 2019Q2

REPORT INFORMATION
  Report Type: Spontaneous
  Country: US (occurrence: US)
  Receive Date: 20190517
  Receipt Date: 20190517
  Transmission Date: 20190711
  Serious: No
  Sender: FDA-Public Use
  Company Number: US-TEVA-2019-US-1049514

PATIENT
  Age: 71 Year
  Sex: Male

DRUGS (11)
  1. TESTOSTERONE. [Suspect]
     Active Substance: TESTOSTERONE
     Route: 065
  2. HYDROCORTISONE. [Suspect]
     Active Substance: HYDROCORTISONE
     Route: 065
  3. PROGESTERONE. [Suspect]
     Active Substance: PROGESTERONE
     Route: 065
  4. TRYPTOPHAN [Suspect]
     Active Substance: TRYPTOPHAN
     Indication: INSOMNIA
     Route: 065
  5. RAMELTEON [Suspect]
     Active Substance: RAMELTEON
     Indication: INSOMNIA
     Dosage: TAPER OFF AND DISCONTINUE
     Route: 065
  6. AMITRIPTYLINE [Suspect]
     Active Substance: AMITRIPTYLINE
     Indication: INSOMNIA
     Dosage: TAPER OFF AND DISCONTINUE
     Route: 065
  7. TEMAZEPAM. [Suspect]
     Active Substance: TEMAZEPAM
     Indication: INSOMNIA
     Dosage: TAPER OFF AND DISCONTINUE
     Route: 065
  8. DHEA [Suspect]
     Active Substance: PRASTERONE
     Route: 065
  9. ANASTROZOLE. [Suspect]
     Active Substance: ANASTROZOLE
     Route: 065
  10. QUETIAPINE FUMARATE. [Suspect]
     Active Substance: QUETIAPINE FUMARATE
     Indication: INSOMNIA
     Route: 065
  11. MELATONIN [Suspect]
     Active Substance: MELATONIN
     Indication: INSOMNIA
     Dosage: TAPER OFF AND DISCONTINUE
     Route: 065

REACTIONS (2)
  - Multiple drug therapy [Unknown]
  - Product use issue [Unknown]
